FAERS Safety Report 19274533 (Version 2)
Quarter: 2021Q2

REPORT INFORMATION
  Report Type: Spontaneous
  Country: US (occurrence: US)
  Receive Date: 20210519
  Receipt Date: 20210528
  Transmission Date: 20210717
  Serious: No
  Sender: FDA-Public Use
  Company Number: US-SA-2021SA155320

PATIENT
  Age: 77 Year
  Sex: Male

DRUGS (1)
  1. LANTUS [Suspect]
     Active Substance: INSULIN GLARGINE
     Dosage: 40U IN MORNING, 30U IN EVENING
     Route: 065

REACTIONS (3)
  - Inappropriate schedule of product administration [Unknown]
  - Device operational issue [Unknown]
  - Device issue [Unknown]

NARRATIVE: CASE EVENT DATE: 20210505
